FAERS Safety Report 5203969-0 (Version None)
Quarter: 2007Q1

REPORT INFORMATION
  Report Type: 
  Country: None (occurrence: None)
  Receive Date: 20070105
  Receipt Date: 20061227
  Transmission Date: 20070707
  Serious: Yes (Hospitalization)
  Sender: FDA-Public Use
  Company Number: 2006-03276

PATIENT
  Age: 63 Year
  Sex: Male

DRUGS (17)
  1. VELCADE [Suspect]
     Indication: MULTIPLE MYELOMA
     Dosage: 1.30 MG/MD, INTRAVENOUS
     Route: 042
     Dates: start: 20061204, end: 20061212
  2. OMEPRAZOLE [Concomitant]
  3. CIPROFLOXACIN [Concomitant]
  4. TAMSULOSIN HCL [Concomitant]
  5. SALBUTAMOL INHALANT ^RATIOPHARM^ (SALBUTAMOL SULFATE) [Concomitant]
  6. SERETIDE (FLUTICASONE PROPIONATE, SALMETEROL) [Concomitant]
  7. ZOFRAN [Concomitant]
  8. VITAMIN B TABLET [Concomitant]
  9. PYRIDOXINE (PYRIDOXINE) [Concomitant]
  10. FOLIC ACID [Concomitant]
  11. FOLIC ACID [Concomitant]
  12. ACYCLOVIR [Concomitant]
  13. SULFAMETHOXAZOLE + TRIMETHOPRIM [Concomitant]
  14. CHLORHEXIDINE (CHLORHEXIDINE) [Concomitant]
  15. NYSTATIN [Concomitant]
  16. DEXAMETHASONE [Concomitant]
  17. LORON (CLODRONATE DISODIUM) [Concomitant]

REACTIONS (8)
  - ANAEMIA [None]
  - ATRIAL FIBRILLATION [None]
  - CIRCULATORY COLLAPSE [None]
  - FALL [None]
  - HYPOTENSION [None]
  - LETHARGY [None]
  - MALAISE [None]
  - NEUTROPENIA [None]
